FAERS Safety Report 9461273 (Version 3)
Quarter: 2013Q4

REPORT INFORMATION
  Report Type: Spontaneous
  Country: US (occurrence: US)
  Receive Date: 20130816
  Receipt Date: 20131028
  Transmission Date: 20140711
  Serious: No
  Sender: FDA-Public Use
  Company Number: US-PFIZER INC-2013236070

PATIENT
  Sex: Female

DRUGS (4)
  1. ADVIL [Suspect]
     Indication: PAIN
     Dosage: TWO TABLETS, EVERY SIX HOURS
     Route: 048
     Dates: start: 201308, end: 2013
  2. ADVIL [Suspect]
     Indication: SWELLING
  3. ADVIL [Suspect]
     Indication: OROPHARYNGEAL PAIN
  4. ADVIL [Suspect]
     Indication: VIRAL INFECTION

REACTIONS (2)
  - Dyspepsia [Unknown]
  - Chest pain [Recovered/Resolved]
